FAERS Safety Report 8590307-9 (Version None)
Quarter: 2012Q3

REPORT INFORMATION
  Report Type: 
  Country: None (occurrence: None)
  Receive Date: 20120813
  Receipt Date: 20120808
  Transmission Date: 20120928
  Serious: Yes (Other)
  Sender: FDA-Public Use
  Company Number: JP-GLAXOSMITHKLINE-B0818526A

PATIENT

DRUGS (1)
  1. ZOVIRAX [Suspect]
     Indication: KERATITIS HERPETIC
     Route: 031

REACTIONS (1)
  - CORNEAL PERFORATION [None]
